FAERS Safety Report 9993071 (Version 1)
Quarter: 2014Q1

REPORT INFORMATION
  Report Type: Report from Study
  Country: US (occurrence: US)
  Receive Date: 20140310
  Receipt Date: 20140310
  Transmission Date: 20141002
  Serious: No
  Sender: FDA-Public Use
  Company Number: US-ABBVIE-13P-163-1182518-00

PATIENT
  Age: 49 Year
  Sex: Female

DRUGS (7)
  1. LUPRON DEPOT [Suspect]
     Indication: UTERINE LEIOMYOMA
     Route: 030
     Dates: start: 201009
  2. LEVOTHYROXINE [Concomitant]
     Indication: PRODUCT USED FOR UNKNOWN INDICATION
  3. LISINOPRIL [Concomitant]
     Indication: PRODUCT USED FOR UNKNOWN INDICATION
  4. EFFEXOR [Concomitant]
     Indication: PRODUCT USED FOR UNKNOWN INDICATION
  5. CLARINEX [Concomitant]
     Indication: PRODUCT USED FOR UNKNOWN INDICATION
  6. HYDROCODONE [Concomitant]
     Indication: PRODUCT USED FOR UNKNOWN INDICATION
  7. ULTRAM [Concomitant]
     Indication: PRODUCT USED FOR UNKNOWN INDICATION

REACTIONS (1)
  - Influenza like illness [Not Recovered/Not Resolved]
